FAERS Safety Report 8916211 (Version 1)
Quarter: 2012Q4

REPORT INFORMATION
  Report Type: 
  Country: FR (occurrence: FR)
  Receive Date: 20121120
  Receipt Date: 20121120
  Transmission Date: 20130627
  Serious: Yes (Hospitalization)
  Sender: FDA-Public Use
  Company Number: FR-GLAXOSMITHKLINE-B0843322A

PATIENT
  Age: 31 Year
  Sex: Female

DRUGS (3)
  1. VENTOLINE [Suspect]
     Indication: ASTHMA
     Route: 042
     Dates: start: 20121009
  2. FORADIL [Suspect]
     Indication: ASTHMA
     Route: 055
     Dates: start: 201207
  3. TRINORDIOL [Concomitant]

REACTIONS (2)
  - Tachycardia [Recovering/Resolving]
  - Intention tremor [Recovering/Resolving]
